FAERS Safety Report 24850452 (Version 1)
Quarter: 2025Q1

REPORT INFORMATION
  Report Type: Spontaneous
  Country: US (occurrence: US)
  Receive Date: 20250116
  Receipt Date: 20250116
  Transmission Date: 20250409
  Serious: No
  Sender: VERTEX
  Company Number: US-VERTEX PHARMACEUTICALS-2025-000505

PATIENT

DRUGS (1)
  1. TRIKAFTA [Suspect]
     Active Substance: ELEXACAFTOR\IVACAFTOR\TEZACAFTOR
     Indication: Cystic fibrosis
     Route: 048
     Dates: start: 2019

REACTIONS (3)
  - Lower respiratory tract infection [Not Recovered/Not Resolved]
  - Weight gain poor [Not Recovered/Not Resolved]
  - C-reactive protein increased [Not Recovered/Not Resolved]
